FAERS Safety Report 13919148 (Version 1)
Quarter: 2017Q3

REPORT INFORMATION
  Report Type: Spontaneous
  Country: US (occurrence: None)
  Receive Date: 20170828
  Receipt Date: 20170828
  Transmission Date: 20171127
  Serious: Yes (Hospitalization)
  Sender: FDA-Public Use
  Company Number: None

PATIENT
  Age: 66 Year
  Sex: Male

DRUGS (1)
  1. METFORMIN [Suspect]
     Active Substance: METFORMIN HYDROCHLORIDE
     Indication: DIABETES MELLITUS
     Route: 048
     Dates: start: 20170130, end: 20170628

REACTIONS (11)
  - Fatigue [None]
  - Dyspnoea [None]
  - Emotional distress [None]
  - Acidosis [None]
  - Hyperglycaemia [None]
  - Toxicity to various agents [None]
  - Kussmaul respiration [None]
  - Blood lactic acid increased [None]
  - Asthenia [None]
  - Acute kidney injury [None]
  - Incoherent [None]

NARRATIVE: CASE EVENT DATE: 20170627
